FAERS Safety Report 20857612 (Version 3)
Quarter: 2022Q2

REPORT INFORMATION
  Report Type: Report from Study
  Country: AU (occurrence: None)
  Receive Date: 20220521
  Receipt Date: 20220526
  Transmission Date: 20220721
  Serious: Yes (Hospitalization)
  Sender: FDA-Public Use
  Company Number: AU-ROCHE-3077263

PATIENT
  Age: 36 Year
  Sex: Female
  Weight: 60 kg

DRUGS (15)
  1. GLOFITAMAB [Suspect]
     Active Substance: GLOFITAMAB
     Indication: Diffuse large B-cell lymphoma
     Dosage: ON 24/MAR/2022 LAST DOSE GIVEN PRIOR TO SAE/AESI.
     Route: 042
     Dates: start: 20220120, end: 20220421
  2. POLATUZUMAB VEDOTIN [Suspect]
     Active Substance: POLATUZUMAB VEDOTIN
     Indication: Diffuse large B-cell lymphoma
     Dosage: ON 07/APR/2022, LAST DOSE GIVEN PRIOR TO SAE/AESI.
     Route: 042
     Dates: start: 20220113, end: 20220407
  3. RITUXIMAB [Suspect]
     Active Substance: RITUXIMAB
     Indication: Diffuse large B-cell lymphoma
     Dosage: ON 07/APR/2022, LAST DOSE GIVEN PRIOR TO SAE/AESI.
     Route: 042
     Dates: start: 20211223, end: 20220407
  4. DOXORUBICIN [Suspect]
     Active Substance: DOXORUBICIN
     Indication: Diffuse large B-cell lymphoma
     Dosage: ON 07/APR/2022, LAST DOSE GIVEN PRIOR TO SAE/AESI.
     Route: 042
     Dates: start: 20211223, end: 20220407
  5. PREDNISOLONE [Suspect]
     Active Substance: PREDNISOLONE
     Indication: Diffuse large B-cell lymphoma
     Dosage: ON 07/APR/2022, LAST DOSE GIVEN PRIOR TO SAE/AESI.
     Route: 048
     Dates: start: 20211223
  6. VINCRISTINE [Suspect]
     Active Substance: VINCRISTINE
     Indication: Diffuse large B-cell lymphoma
     Dosage: ON 23/DEC/2021, LAST DOSE GIVEN PRIOR TO SAE/AESI.
     Route: 042
     Dates: start: 20211223, end: 20211223
  7. CYCLOPHOSPHAMIDE [Suspect]
     Active Substance: CYCLOPHOSPHAMIDE
     Indication: Diffuse large B-cell lymphoma
     Dosage: ON 07/APR/2022, LAST DOSE GIVEN PRIOR TO SAE/AESI.
     Route: 042
     Dates: start: 20211223, end: 20220407
  8. PIPERACILLIN SODIUM\TAZOBACTAM SODIUM [Concomitant]
     Active Substance: PIPERACILLIN SODIUM\TAZOBACTAM SODIUM
     Route: 042
     Dates: start: 20220412, end: 20220416
  9. PIPERACILLIN SODIUM\TAZOBACTAM SODIUM [Concomitant]
     Active Substance: PIPERACILLIN SODIUM\TAZOBACTAM SODIUM
     Route: 042
     Dates: start: 20220513, end: 20220515
  10. METOCLOPRAMIDE [Concomitant]
     Active Substance: METOCLOPRAMIDE
     Route: 048
  11. NIZATIDINE [Concomitant]
     Active Substance: NIZATIDINE
     Route: 048
  12. SULFAMETHOXAZOLE\TRIMETHOPRIM [Concomitant]
     Active Substance: SULFAMETHOXAZOLE\TRIMETHOPRIM
     Dosage: 800/160 MG
     Route: 048
  13. VALACYCLOVIR HYDROCHLORIDE [Concomitant]
     Active Substance: VALACYCLOVIR HYDROCHLORIDE
     Route: 048
  14. AMOXICILLIN [Concomitant]
     Active Substance: AMOXICILLIN
     Dosage: 875 MG + 125 MG
     Route: 048
     Dates: start: 20220417, end: 20220423
  15. GCSF TYPE GROWTH FACTORS (UNK INGREDIENTS) [Concomitant]

REACTIONS (2)
  - Pneumonia [Recovered/Resolved]
  - Febrile neutropenia [Recovered/Resolved]

NARRATIVE: CASE EVENT DATE: 20220412
